FAERS Safety Report 17899808 (Version 1)
Quarter: 2020Q2

REPORT INFORMATION
  Report Type: Spontaneous
  Country: US (occurrence: US)
  Receive Date: 20200616
  Receipt Date: 20200616
  Transmission Date: 20200714
  Serious: No
  Sender: FDA-Public Use
  Company Number: US-COVIS PHARMA B.V.-2020COV00093

PATIENT
  Sex: Female
  Weight: 68.03 kg

DRUGS (8)
  1. OMEPRAZOLE MAGNESIUM. [Suspect]
     Active Substance: OMEPRAZOLE MAGNESIUM
     Indication: DYSPEPSIA
     Dosage: 20 MG, 1X/DAY
     Route: 048
     Dates: start: 2018
  2. PRESERVISION [Concomitant]
     Active Substance: MINERALS\VITAMINS
     Indication: ORGAN PRESERVATION
  3. SYMBICORT [Suspect]
     Active Substance: BUDESONIDE\FORMOTEROL FUMARATE DIHYDRATE
     Indication: ASTHMA
     Dosage: 2 DOSAGE UNITS, 2X/DAY
     Route: 055
     Dates: start: 2006
  4. METOPROLOL. [Suspect]
     Active Substance: METOPROLOL
     Indication: CHEST PAIN
     Dosage: 25 MG, 1X/DAY
     Route: 048
     Dates: start: 201907
  5. ENALAPRIL [Concomitant]
     Active Substance: ENALAPRIL
     Indication: HYPERTENSION
     Dosage: 10 MG, 1X/DAY
     Route: 048
  6. SIMVASTATIN. [Concomitant]
     Active Substance: SIMVASTATIN
     Dosage: 20 MG, 1X/DAY
     Route: 048
  7. ^OMIT^ [Concomitant]
     Indication: VOMITING
  8. MONTELUKAST [Concomitant]
     Active Substance: MONTELUKAST SODIUM
     Dosage: 10 MG, 1X/DAY
     Route: 048

REACTIONS (4)
  - Macular degeneration [Not Recovered/Not Resolved]
  - Cataract [Recovered/Resolved]
  - Vision blurred [Not Recovered/Not Resolved]
  - Diabetes mellitus inadequate control [Not Recovered/Not Resolved]

NARRATIVE: CASE EVENT DATE: 2015
